FAERS Safety Report 19160610 (Version 1)
Quarter: 2021Q2

REPORT INFORMATION
  Report Type: Other
  Country: US (occurrence: US)
  Receive Date: 20210421
  Receipt Date: 20210421
  Transmission Date: 20210717
  Serious: Yes (Hospitalization, Other)
  Sender: FDA-Public Use
  Company Number: US-ROCHE-2314237

PATIENT
  Age: 60 Year
  Sex: Female
  Weight: 90.8 kg

DRUGS (30)
  1. EZETIMIBE. [Concomitant]
     Active Substance: EZETIMIBE
  2. FLUTICASONE. [Concomitant]
     Active Substance: FLUTICASONE
  3. MYRBETRIQ [Concomitant]
     Active Substance: MIRABEGRON
  4. POTASSIUM CHLORIDE. [Concomitant]
     Active Substance: POTASSIUM CHLORIDE
  5. VESICARE [Concomitant]
     Active Substance: SOLIFENACIN SUCCINATE
  6. OCREVUS [Suspect]
     Active Substance: OCRELIZUMAB
     Indication: RELAPSING MULTIPLE SCLEROSIS
     Dosage: SECOND HALF ;ONGOING: UNKNOWN
     Route: 042
     Dates: start: 2018
  7. DECADRON [Suspect]
     Active Substance: DEXAMETHASONE
     Indication: PREMEDICATION
     Dosage: FIRST TIME TRYING TO GET INFUSION
     Route: 042
     Dates: start: 20201228, end: 20201228
  8. MINOCYCLINE [Concomitant]
     Active Substance: MINOCYCLINE HYDROCHLORIDE
     Indication: RASH
     Dosage: ONGOING YES
     Dates: start: 20190415
  9. IRON [Concomitant]
     Active Substance: IRON
  10. EFFEXOR XR [Concomitant]
     Active Substance: VENLAFAXINE HYDROCHLORIDE
  11. EPIPEN [Concomitant]
     Active Substance: EPINEPHRINE
  12. FUROSEMIDE. [Concomitant]
     Active Substance: FUROSEMIDE
  13. LABETALOL [Concomitant]
     Active Substance: LABETALOL\LABETALOL HYDROCHLORIDE
  14. OCREVUS [Suspect]
     Active Substance: OCRELIZUMAB
     Indication: RELAPSING-REMITTING MULTIPLE SCLEROSIS
     Dosage: FIRST HALF
     Route: 042
     Dates: start: 20180611, end: 20190920
  15. VANCOMYCIN [Concomitant]
     Active Substance: VANCOMYCIN
  16. DEXILANT [Concomitant]
     Active Substance: DEXLANSOPRAZOLE
  17. PERCOCET [Concomitant]
     Active Substance: ACETAMINOPHEN\OXYCODONE HYDROCHLORIDE
     Indication: PAIN IN EXTREMITY
  18. HYDROXYZINE HYDROCHLORIDE. [Concomitant]
     Active Substance: HYDROXYZINE HYDROCHLORIDE
  19. BENADRYL [Suspect]
     Active Substance: DIPHENHYDRAMINE HYDROCHLORIDE
     Indication: PREMEDICATION
     Dosage: JUST ONE TIME BEFORE THE INFUSION
     Route: 042
  20. POTASSIUM [Concomitant]
     Active Substance: POTASSIUM
  21. PREDNISONE. [Concomitant]
     Active Substance: PREDNISONE
  22. AMLODIPINE [Concomitant]
     Active Substance: AMLODIPINE BESYLATE
  23. TIZANIDINE. [Concomitant]
     Active Substance: TIZANIDINE
  24. ATORVASTATIN [Concomitant]
     Active Substance: ATORVASTATIN
  25. DIPHENHYDRAMINE. [Concomitant]
     Active Substance: DIPHENHYDRAMINE
  26. HYOSCYAMINE. [Concomitant]
     Active Substance: HYOSCYAMINE
  27. OCREVUS [Suspect]
     Active Substance: OCRELIZUMAB
     Dosage: FULL DOSE
     Route: 042
     Dates: start: 20190329
  28. OCREVUS [Suspect]
     Active Substance: OCRELIZUMAB
     Route: 042
     Dates: start: 201806
  29. VALIUM [Suspect]
     Active Substance: DIAZEPAM
     Indication: MULTIPLE SCLEROSIS RELAPSE
     Dosage: SECOND HALF ;ONGOING: UNKNOWN
     Route: 065
  30. DICYCLOMINE [Concomitant]
     Active Substance: DICYCLOMINE HYDROCHLORIDE

REACTIONS (19)
  - Multiple sclerosis [Not Recovered/Not Resolved]
  - Hypoaesthesia [Not Recovered/Not Resolved]
  - Gait inability [Recovered/Resolved]
  - Pain [Recovered/Resolved]
  - Speech disorder [Recovered/Resolved with Sequelae]
  - Muscular weakness [Recovered/Resolved with Sequelae]
  - Therapeutic response decreased [Unknown]
  - Sensation of foreign body [Unknown]
  - Dizziness [Not Recovered/Not Resolved]
  - Rash [Recovered/Resolved with Sequelae]
  - Gait disturbance [Recovered/Resolved with Sequelae]
  - Memory impairment [Recovered/Resolved with Sequelae]
  - Dyspnoea [Recovered/Resolved]
  - Hypersensitivity [Recovered/Resolved]
  - Hypoaesthesia [Unknown]
  - Tremor [Not Recovered/Not Resolved]
  - Blindness [Recovered/Resolved with Sequelae]
  - Anxiety [Not Recovered/Not Resolved]
  - Migraine [Recovered/Resolved]

NARRATIVE: CASE EVENT DATE: 201807
